FAERS Safety Report 7922900-8 (Version None)
Quarter: 2011Q4

REPORT INFORMATION
  Report Type: 
  Country: None (occurrence: None)
  Receive Date: 20111117
  Receipt Date: 20110902
  Transmission Date: 20120403
  Serious: No
  Sender: FDA-Public Use
  Company Number: US-ALLERGAN-1111771US

PATIENT
  Age: 66 Year
  Sex: Female

DRUGS (2)
  1. GENERIC VISINE [Concomitant]
     Indication: OCULAR HYPERAEMIA
  2. LASTACAFT [Suspect]
     Indication: EYE PRURITUS
     Dosage: 1 GTT, QD
     Route: 047
     Dates: start: 20110901

REACTIONS (3)
  - LACRIMATION INCREASED [None]
  - EYE IRRITATION [None]
  - SCLERAL HYPERAEMIA [None]
